FAERS Safety Report 9776049 (Version 1)
Quarter: 2013Q4

REPORT INFORMATION
  Report Type: Spontaneous
  Country: CH (occurrence: None)
  Receive Date: 20131219
  Receipt Date: 20131219
  Transmission Date: 20140711
  Serious: Yes (Hospitalization)
  Sender: FDA-Public Use
  Company Number: 2013120033

PATIENT
  Age: 53 Year
  Sex: Male

DRUGS (9)
  1. TOREM (TORASEMIDE) [Suspect]
     Indication: CORONARY ARTERY DISEASE
     Route: 048
     Dates: start: 2009
  2. HYGROTON [Suspect]
     Indication: CORONARY ARTERY DISEASE
     Dosage: 50 MG (25 MG,2 IN 1 D),ORAL
     Route: 048
     Dates: end: 20131026
  3. SOTALOL [Suspect]
     Indication: ARRHYTHMIA
     Dosage: 160 MG (80 MG,2 IN 1 D),ORAL
     Route: 048
     Dates: end: 20131026
  4. ALDACTONE (SPIRONOLACTONE (FILM-COATED TABLET)) [Concomitant]
  5. KCL RETARD HAUSMANN (POTASSIUM CHLORIDE) [Concomitant]
  6. ASPIRIN CARDIO (ACETYLSALICYLIC ACID) [Concomitant]
  7. MG (MAGNESIUM ASPARTATE) [Concomitant]
  8. ALLOPURINOL [Concomitant]
  9. MARCOUMAR (PHENPROCOUMON) [Concomitant]

REACTIONS (3)
  - Ventricular tachycardia [None]
  - Hypokalaemia [None]
  - Drug interaction [None]
